FAERS Safety Report 5716409-X (Version None)
Quarter: 2008Q2

REPORT INFORMATION
  Report Type: 
  Country: None (occurrence: None)
  Receive Date: 20080424
  Receipt Date: 20080417
  Transmission Date: 20081010
  Serious: Yes (Hospitalization)
  Sender: FDA-Public Use
  Company Number: JP-ALLERGAN-0804645US

PATIENT
  Sex: Male

DRUGS (3)
  1. BLINDED BOTOX PLACEBO [Suspect]
     Indication: MUSCLE SPASMS
     Dosage: 150 UNITS, UNK
     Route: 030
     Dates: start: 20071128, end: 20071128
  2. BOTOX [Suspect]
     Indication: MUSCLE SPASMS
     Dosage: 150 UNITS, UNK
     Route: 030
     Dates: start: 20071128, end: 20071128
  3. BOTOX [Suspect]
     Indication: DRUG USE FOR UNKNOWN INDICATION
     Dosage: 240 UNITS, UNK
     Route: 030
     Dates: start: 20080220, end: 20080220

REACTIONS (1)
  - NEUROMYOPATHY [None]
